FAERS Safety Report 4980141-0 (Version None)
Quarter: 2006Q2

REPORT INFORMATION
  Report Type: 
  Country: None (occurrence: None)
  Receive Date: 20060421
  Receipt Date: 20060118
  Transmission Date: 20061013
  Serious: Yes (Death, Other)
  Sender: FDA-Public Use
  Company Number: JP-MERCK-0601USA02575

PATIENT
  Age: 68 Year
  Sex: Male
  Weight: 73 kg

DRUGS (16)
  1. BIOFERMIN R [Concomitant]
     Indication: GASTROENTERITIS BACTERIAL
     Route: 048
     Dates: start: 20040216, end: 20040218
  2. CLINORIL [Suspect]
     Indication: PAIN
     Route: 048
     Dates: start: 20040213, end: 20040213
  3. CLINORIL [Suspect]
     Route: 048
     Dates: start: 20040218, end: 20040218
  4. CLINORIL [Suspect]
     Route: 048
     Dates: start: 20040212, end: 20040212
  5. CLINORIL [Suspect]
     Indication: PYREXIA
     Route: 048
     Dates: start: 20040213, end: 20040213
  6. CLINORIL [Suspect]
     Route: 048
     Dates: start: 20040218, end: 20040218
  7. CLINORIL [Suspect]
     Route: 048
     Dates: start: 20040212, end: 20040212
  8. TAMIFLU [Suspect]
     Indication: INFLUENZA
     Route: 048
     Dates: start: 20040212, end: 20040216
  9. AMLODIN [Concomitant]
     Indication: HYPERTENSION
     Route: 048
     Dates: end: 20040218
  10. SELOKEN [Concomitant]
     Indication: HYPERTENSION
     Route: 048
     Dates: end: 20060218
  11. CARDENALIN [Concomitant]
     Indication: HYPERTENSION
     Route: 048
     Dates: end: 20040218
  12. ZYLORIC [Concomitant]
     Indication: HYPERURICAEMIA
     Route: 065
     Dates: end: 20060218
  13. GASTER [Concomitant]
     Indication: GASTRITIS
     Route: 048
     Dates: end: 20060218
  14. FERROMIA [Concomitant]
     Indication: IRON DEFICIENCY ANAEMIA
     Route: 048
     Dates: end: 20060217
  15. CEFAMEZIN [Concomitant]
     Indication: MONARTHRITIS
     Route: 042
     Dates: start: 20040205, end: 20040209
  16. CRAVIT [Concomitant]
     Indication: GASTROENTERITIS BACTERIAL
     Route: 048
     Dates: start: 20040216, end: 20040217

REACTIONS (14)
  - ACIDOSIS [None]
  - ANOREXIA [None]
  - DEHYDRATION [None]
  - DIARRHOEA [None]
  - HAEMODIALYSIS [None]
  - HYPERKALAEMIA [None]
  - ILEAL ULCER PERFORATION [None]
  - INTESTINAL PERFORATION [None]
  - METABOLIC ACIDOSIS [None]
  - PERITONITIS [None]
  - RENAL FAILURE ACUTE [None]
  - RENAL IMPAIRMENT [None]
  - SEPSIS [None]
  - WHITE BLOOD CELL COUNT INCREASED [None]
